FAERS Safety Report 9412903 (Version 2)
Quarter: 2013Q4

REPORT INFORMATION
  Report Type: Spontaneous
  Country: US (occurrence: US)
  Receive Date: 20130722
  Receipt Date: 20131030
  Transmission Date: 20140711
  Serious: Yes (Hospitalization, Other)
  Sender: FDA-Public Use
  Company Number: US-BAYER-2013-087996

PATIENT
  Age: 25 Year
  Sex: Female
  Weight: 72.56 kg

DRUGS (1)
  1. MIRENA [Suspect]
     Indication: CONTRACEPTION
     Dosage: 20 MCG/24HR, CONT
     Route: 015
     Dates: start: 20130214, end: 20130509

REACTIONS (10)
  - Uterine perforation [None]
  - Device dislocation [None]
  - Injury [None]
  - Abdominal pain [None]
  - Back pain [None]
  - Uterine haemorrhage [None]
  - Migraine [None]
  - Scar [None]
  - Dizziness [None]
  - Emotional distress [None]
